FAERS Safety Report 25342942 (Version 1)
Quarter: 2025Q2

REPORT INFORMATION
  Report Type: Report from Study
  Country: US (occurrence: None)
  Receive Date: 20250521
  Receipt Date: 20250521
  Transmission Date: 20250716
  Serious: No
  Sender: INCYTE
  Company Number: US-INCYTE CORPORATION-2025IN004895

PATIENT

DRUGS (1)
  1. JAKAFI [Suspect]
     Active Substance: RUXOLITINIB
     Indication: Myelofibrosis
     Dosage: 5 MILLIGRAM, BID
     Route: 065

REACTIONS (4)
  - Arthralgia [Recovering/Resolving]
  - Laboratory test abnormal [Unknown]
  - Therapeutic response unexpected [Recovering/Resolving]
  - Dizziness [Recovering/Resolving]
